FAERS Safety Report 7734063-2 (Version None)
Quarter: 2011Q3

REPORT INFORMATION
  Report Type: 
  Country: None (occurrence: None)
  Receive Date: 20110907
  Receipt Date: 20110830
  Transmission Date: 20111222
  Serious: Yes (Life-Threatening, Hospitalization, Other)
  Sender: FDA-Public Use
  Company Number: GB-ROCHE-797434

PATIENT
  Sex: Female
  Weight: 54.7 kg

DRUGS (3)
  1. PEGASYS [Suspect]
     Route: 058
     Dates: start: 20110506, end: 20110629
  2. COPEGUS [Suspect]
     Indication: HEPATITIS C
     Route: 048
     Dates: start: 20110506, end: 20110629
  3. PEGASYS [Suspect]
     Indication: HEPATITIS C
     Route: 058

REACTIONS (5)
  - ASCITES [None]
  - JAUNDICE [None]
  - PLATELET COUNT DECREASED [None]
  - BLOOD ALBUMIN DECREASED [None]
  - HEPATIC FAILURE [None]
